FAERS Safety Report 21325409 (Version 2)
Quarter: 2022Q4

REPORT INFORMATION
  Report Type: Report from Study
  Country: US (occurrence: US)
  Receive Date: 20220912
  Receipt Date: 20221006
  Transmission Date: 20230113
  Serious: No
  Sender: FDA-Public Use
  Company Number: US-SA-SAC20220909000962

PATIENT
  Age: 56 Year
  Sex: Female

DRUGS (7)
  1. TERIFLUNOMIDE [Suspect]
     Active Substance: TERIFLUNOMIDE
     Dosage: UNK
     Route: 048
     Dates: start: 20191230
  2. CARVEDILOL [Suspect]
     Active Substance: CARVEDILOL
     Dosage: UNK
  3. VITAMIN D NOS [Suspect]
     Active Substance: VITAMIN D NOS
  4. CARBAMAZEPINE [Suspect]
     Active Substance: CARBAMAZEPINE
  5. GABAPENTIN [Suspect]
     Active Substance: GABAPENTIN
  6. LISINOPRIL [Suspect]
     Active Substance: LISINOPRIL
  7. BACLOFEN [Suspect]
     Active Substance: BACLOFEN
     Dosage: UNK

REACTIONS (1)
  - Anxiety [Not Recovered/Not Resolved]
